FAERS Safety Report 18879171 (Version 1)
Quarter: 2021Q1

REPORT INFORMATION
  Report Type: Spontaneous
  Country: US (occurrence: US)
  Receive Date: 20210211
  Receipt Date: 20210211
  Transmission Date: 20210420
  Serious: No
  Sender: FDA-Public Use
  Company Number: None

PATIENT
  Age: 61 Year
  Sex: Female
  Weight: 81 kg

DRUGS (1)
  1. BAMLANIVIMAB (EUA) (BAMLANIVIMAB (EUA)) [Suspect]
     Active Substance: BAMLANIVIMAB\ETESEVIMAB
     Indication: COVID-19
     Route: 042
     Dates: start: 20210205, end: 20210205

REACTIONS (5)
  - Dermatitis atopic [None]
  - Urticaria [None]
  - Rash [None]
  - Rash pruritic [None]
  - Pruritus [None]

NARRATIVE: CASE EVENT DATE: 20210208
